FAERS Safety Report 11905145 (Version 1)
Quarter: 2016Q1

REPORT INFORMATION
  Report Type: Spontaneous
  Country: US (occurrence: US)
  Receive Date: 20160109
  Receipt Date: 20160109
  Transmission Date: 20160526
  Serious: No
  Sender: FDA-Public Use
  Company Number: US-JNJFOC-20151212217

PATIENT
  Weight: 38.56 kg

DRUGS (4)
  1. RISPERIDAL [Suspect]
     Active Substance: RISPERIDONE
     Indication: ANXIETY
     Route: 065
  2. RISPERIDAL [Suspect]
     Active Substance: RISPERIDONE
     Indication: DEPRESSION
     Route: 065
  3. RISPERIDAL [Suspect]
     Active Substance: RISPERIDONE
     Indication: ANXIETY
     Route: 065
  4. RISPERIDAL [Suspect]
     Active Substance: RISPERIDONE
     Indication: DEPRESSION
     Route: 065

REACTIONS (9)
  - Hypersomnia [Unknown]
  - Hypopnoea [Unknown]
  - Dizziness [Unknown]
  - Bruxism [Unknown]
  - Product use issue [Unknown]
  - Off label use [Unknown]
  - Confusional state [Unknown]
  - Intentional product use issue [Unknown]
  - Inappropriate affect [Unknown]
